FAERS Safety Report 4704126-4 (Version None)
Quarter: 2005Q2

REPORT INFORMATION
  Report Type: 
  Country: None (occurrence: None)
  Receive Date: 20050629
  Receipt Date: 20031218
  Transmission Date: 20051028
  Serious: Yes (Hospitalization)
  Sender: FDA-Public Use
  Company Number: 6946

PATIENT
  Age: 30 Year
  Sex: Female

DRUGS (1)
  1. ACYCLOVIR [Suspect]
     Indication: ENCEPHALITIS HERPES
     Dosage: 250 MG QID IV
     Route: 042

REACTIONS (6)
  - CONFUSIONAL STATE [None]
  - CONVULSION [None]
  - DYSARTHRIA [None]
  - HALLUCINATION [None]
  - NEUROTOXICITY [None]
  - TOXIC INDUCED ENCEPHALOPATHY [None]
